FAERS Safety Report 8454123-0 (Version None)
Quarter: 2012Q2

REPORT INFORMATION
  Report Type: 
  Country: None (occurrence: None)
  Receive Date: 20120620
  Receipt Date: 20120618
  Transmission Date: 20120825
  Serious: No
  Sender: FDA-Public Use
  Company Number: US-PFIZER INC-2012147541

PATIENT
  Sex: Female

DRUGS (1)
  1. CELEBREX [Suspect]
     Indication: PAIN
     Dosage: UNK

REACTIONS (7)
  - HYPERSOMNIA [None]
  - DIARRHOEA [None]
  - CHEST DISCOMFORT [None]
  - OEDEMA PERIPHERAL [None]
  - MUSCULOSKELETAL DISCOMFORT [None]
  - THROAT TIGHTNESS [None]
  - THROAT IRRITATION [None]
